FAERS Safety Report 4311371-9 (Version None)
Quarter: 2004Q1

REPORT INFORMATION
  Report Type: 
  Country: None (occurrence: None)
  Receive Date: 20040304
  Receipt Date: 20040216
  Transmission Date: 20041129
  Serious: Yes (Hospitalization)
  Sender: FDA-Public Use
  Company Number: 200411272US

PATIENT
  Sex: Male

DRUGS (2)
  1. ARAVA [Suspect]
     Dosage: DOSE: UNK
  2. CELEBREX [Concomitant]
     Dosage: DOSE: UNK

REACTIONS (1)
  - GRAND MAL CONVULSION [None]
